FAERS Safety Report 7957937-6 (Version None)
Quarter: 2011Q4

REPORT INFORMATION
  Report Type: 
  Country: None (occurrence: None)
  Receive Date: 20111205
  Receipt Date: 20111121
  Transmission Date: 20120403
  Serious: Yes (Hospitalization)
  Sender: FDA-Public Use
  Company Number: US-SANOFI-AVENTIS-2010SA034431

PATIENT
  Age: 89 Year
  Sex: Female

DRUGS (3)
  1. WARFARIN SODIUM [Suspect]
     Indication: ATRIAL FIBRILLATION
     Route: 065
  2. PLAVIX [Suspect]
     Indication: FALL
     Route: 065
  3. HEPARIN [Concomitant]
     Indication: ANTICOAGULANT THERAPY
     Route: 042

REACTIONS (4)
  - FALL [None]
  - OFF LABEL USE [None]
  - THROMBOCYTOPENIA [None]
  - ASTHENIA [None]
